FAERS Safety Report 9579393 (Version 2)
Quarter: 2013Q4

REPORT INFORMATION
  Report Type: Spontaneous
  Country: US (occurrence: US)
  Receive Date: 20131001
  Receipt Date: 20131001
  Transmission Date: 20140711
  Serious: No
  Sender: FDA-Public Use
  Company Number: US-AMGEN-USASP2013007810

PATIENT
  Age: 64 Year
  Sex: Male
  Weight: 100.23 kg

DRUGS (8)
  1. ENBREL [Suspect]
     Indication: RHEUMATOID ARTHRITIS
     Dosage: 50 MG, QWK
     Dates: start: 2008
  2. METHOTREXATE [Concomitant]
     Dosage: 8, 2.5 MG TABLETS, QWK
     Dates: start: 2007
  3. HUMIRA [Concomitant]
     Dosage: UNK
  4. SALAGEN [Concomitant]
     Dosage: 5 MG, UNK 3 LMFFL A DAY WITH MEAL AS NEEDED
  5. FLURBIPROFEN [Concomitant]
     Dosage: 100 MG, UNK 2 GMES A DAY AS NOODED WLTH MEALS
  6. FOLIC ACID [Concomitant]
     Dosage: 1 MG, QD
  7. LISINOPRIL [Concomitant]
     Dosage: 40 MG, QD
  8. LUNESTA [Concomitant]
     Dosage: 3 MG, AS NECESSARY

REACTIONS (10)
  - Pain [Recovered/Resolved]
  - Musculoskeletal stiffness [Recovered/Resolved]
  - Local swelling [Recovered/Resolved]
  - Joint swelling [Recovered/Resolved]
  - Cough [Unknown]
  - Pain in extremity [Recovered/Resolved]
  - Nodule [Unknown]
  - Arthropathy [Recovering/Resolving]
  - Infection [Recovered/Resolved]
  - Upper respiratory tract infection [Recovered/Resolved]
